FAERS Safety Report 7649172-6 (Version None)
Quarter: 2011Q3

REPORT INFORMATION
  Report Type: 
  Country: None (occurrence: None)
  Receive Date: 20110720
  Receipt Date: 20110705
  Transmission Date: 20111222
  Serious: Yes (Hospitalization, Other)
  Sender: FDA-Public Use
  Company Number: 2011028645

PATIENT
  Sex: Male
  Weight: 58.9676 kg

DRUGS (16)
  1. TOPIRAMATE [Concomitant]
  2. PREDNISONE [Concomitant]
  3. MIRTAZAPINE [Concomitant]
  4. AMITRIPTYLINE HCL [Concomitant]
  5. SUMATRIPTAN (SUMATRIPTAN) [Concomitant]
  6. MAXALT (RIZATRIPTAN) [Concomitant]
  7. CYCLOBENZAPRINE [Concomitant]
  8. PYRIDOSTIGMINE (PYRIDOSTIGMINE) [Concomitant]
  9. METHOTREXATE [Concomitant]
  10. PRIVIGEN [Suspect]
     Indication: MYASTHENIA GRAVIS
     Dates: start: 20110615, end: 20110617
  11. PRIVIGEN [Suspect]
     Indication: MYASTHENIA GRAVIS
     Dates: start: 20110501
  12. MELOXICAM [Concomitant]
  13. GABAPENTIN [Concomitant]
  14. DIVALPROEX (VALPROATE SEMISODIUM) [Concomitant]
  15. MESTINON [Concomitant]
  16. ATENOLOL [Concomitant]

REACTIONS (12)
  - MYALGIA [None]
  - MUSCLE SPASMS [None]
  - CHROMATURIA [None]
  - VITAMIN B COMPLEX DEFICIENCY [None]
  - BLOOD ELECTROLYTES DECREASED [None]
  - DYSSTASIA [None]
  - HAEMOGLOBIN DECREASED [None]
  - ASTHENOPIA [None]
  - DIZZINESS [None]
  - PAIN [None]
  - TREMOR [None]
  - ASTHENIA [None]
